FAERS Safety Report 6190434-X (Version None)
Quarter: 2009Q2

REPORT INFORMATION
  Report Type: 
  Country: None (occurrence: None)
  Receive Date: 20090514
  Receipt Date: 20090512
  Transmission Date: 20091009
  Serious: Yes (Other)
  Sender: FDA-Public Use
  Company Number: BE-BRISTOL-MYERS SQUIBB COMPANY-14580732

PATIENT
  Age: 55 Year
  Sex: Male

DRUGS (6)
  1. REYATAZ [Suspect]
     Indication: ANTIRETROVIRAL THERAPY
     Route: 048
     Dates: start: 20030703
  2. REYATAZ [Suspect]
     Indication: HIV INFECTION
     Route: 048
     Dates: start: 20030703
  3. RITONAVIR [Suspect]
     Indication: ANTIRETROVIRAL THERAPY
  4. EPIVER [Suspect]
     Indication: ANTIRETROVIRAL THERAPY
  5. VIREAD [Suspect]
     Indication: ANTIRETROVIRAL THERAPY
  6. MYSOLINE [Concomitant]

REACTIONS (2)
  - COGNITIVE DISORDER [None]
  - DRUG INEFFECTIVE [None]
